FAERS Safety Report 25838453 (Version 2)
Quarter: 2025Q4

REPORT INFORMATION
  Report Type: Spontaneous
  Country: EU (occurrence: EU)
  Receive Date: 20250923
  Receipt Date: 20251124
  Transmission Date: 20260118
  Serious: Yes (Death, Hospitalization)
  Sender: ALEXION PHARMACEUTICALS
  Company Number: EU-ASTRAZENECA-202509EEA016499ES

PATIENT
  Sex: Male

DRUGS (1)
  1. ULTOMIRIS [Suspect]
     Active Substance: RAVULIZUMAB-CWVZ
     Indication: Myasthenia gravis
     Dosage: UNK
     Route: 065

REACTIONS (7)
  - Pseudomonas infection [Fatal]
  - Bronchopleural fistula [Fatal]
  - Pneumothorax [Fatal]
  - Cytomegalovirus infection [Fatal]
  - Pneumocystis test positive [Fatal]
  - Intensive care unit acquired weakness [Fatal]
  - Jugular vein thrombosis [Fatal]
